FAERS Safety Report 4306800-0 (Version None)
Quarter: 2004Q1

REPORT INFORMATION
  Report Type: 
  Country: None (occurrence: None)
  Receive Date: 20040225
  Receipt Date: 20040204
  Transmission Date: 20041129
  Serious: Yes (Other)
  Sender: FDA-Public Use
  Company Number: USA040258483

PATIENT
  Age: 77 Year
  Sex: Female
  Weight: 47 kg

DRUGS (1)
  1. FORTEO [Suspect]
     Indication: OSTEOPOROSIS
     Dates: start: 20040114

REACTIONS (1)
  - CARDIAC VALVE DISEASE [None]
